FAERS Safety Report 7090738-2 (Version None)
Quarter: 2010Q4

REPORT INFORMATION
  Report Type: 
  Country: None (occurrence: None)
  Receive Date: 20101109
  Receipt Date: 20101027
  Transmission Date: 20110411
  Serious: Yes (Other)
  Sender: FDA-Public Use
  Company Number: PHFR2010GB04430

PATIENT
  Sex: Female

DRUGS (2)
  1. TEGRETOL [Suspect]
     Indication: EPILEPSY
     Dosage: 200 MG, UNK
  2. TEGRETOL [Suspect]
     Dosage: 200 MG, BID
     Dates: start: 20100101

REACTIONS (4)
  - DIPLOPIA [None]
  - PHOTOPSIA [None]
  - VISUAL IMPAIRMENT [None]
  - VITREOUS FLOATERS [None]
